FAERS Safety Report 25595218 (Version 2)
Quarter: 2025Q4

REPORT INFORMATION
  Report Type: Report from Study
  Country: US (occurrence: US)
  Receive Date: 20250723
  Receipt Date: 20251219
  Transmission Date: 20260118
  Serious: Yes (Hospitalization, Other)
  Sender: TAKEDA
  Company Number: US-TAKEDA-2024TUS125083

PATIENT
  Age: 56 Year
  Sex: Male
  Weight: 150 kg

DRUGS (2)
  1. GLASSIA [Suspect]
     Active Substance: .ALPHA.1-PROTEINASE INHIBITOR HUMAN
     Indication: Alpha-1 antitrypsin deficiency
     Dosage: 60 MILLIGRAM/KILOGRAM, 1/WEEK
  2. GLASSIA [Suspect]
     Active Substance: .ALPHA.1-PROTEINASE INHIBITOR HUMAN

REACTIONS (11)
  - Platelet count decreased [Unknown]
  - Pulmonary hypertension [Unknown]
  - Drug hypersensitivity [Unknown]
  - Device infusion issue [Unknown]
  - Rash pruritic [Unknown]
  - Pyrexia [Unknown]
  - Productive cough [Recovering/Resolving]
  - Malaise [Unknown]
  - Chest discomfort [Unknown]
  - Cough [Unknown]
  - Dyspnoea [Recovering/Resolving]
